FAERS Safety Report 10401907 (Version 1)
Quarter: 2014Q3

REPORT INFORMATION
  Report Type: Spontaneous
  Country: GB (occurrence: None)
  Receive Date: 20140820
  Receipt Date: 20140820
  Transmission Date: 20150326
  Serious: Yes (Hospitalization)
  Sender: FDA-Public Use
  Company Number: FK201403315

PATIENT
  Age: 74 Year
  Sex: Male
  Weight: 93 kg

DRUGS (14)
  1. CISPLATIN. [Suspect]
     Active Substance: CISPLATIN
     Indication: NON-SMALL CELL LUNG CANCER
     Dates: start: 20140710, end: 20140710
  2. HYDROXOCOBALAMIN [Concomitant]
     Active Substance: HYDROXOCOBALAMIN
  3. PERINDOPRIL [Concomitant]
     Active Substance: PERINDOPRIL
  4. BUMETANIDE (BUMETANIDE) [Concomitant]
     Active Substance: BUMETANIDE
  5. FOLIC ACID (FOLIC ACID) [Concomitant]
     Active Substance: FOLIC ACID
  6. PEMETREXED [Suspect]
     Active Substance: PEMETREXED
     Indication: NON-SMALL CELL LUNG CANCER
     Route: 042
     Dates: start: 20140710, end: 20140710
  7. ONDANSETRON. [Concomitant]
     Active Substance: ONDANSETRON
  8. ATORVASTATIN (ATORVASTATIN) [Concomitant]
     Active Substance: ATORVASTATIN
  9. DEMECLOCYCLINE [Concomitant]
     Active Substance: DEMECLOCYCLINE
  10. ASPIRIN (ACETYLSALICYLIC ACID) [Concomitant]
     Active Substance: ASPIRIN
  11. AMLODIPINE [Concomitant]
     Active Substance: AMLODIPINE BESYLATE
  12. CARBOPLATIN (CARBOPLATIN) [Concomitant]
     Active Substance: CARBOPLATIN
  13. DEXAMETHASONE (DEXAMETHASONE) [Concomitant]
     Active Substance: DEXAMETHASONE
  14. DOXAZOSIN [Concomitant]
     Active Substance: DOXAZOSIN\DOXAZOSIN MESYLATE

REACTIONS (2)
  - Colitis [None]
  - Diarrhoea [None]
